FAERS Safety Report 5223369-7 (Version None)
Quarter: 2007Q1

REPORT INFORMATION
  Report Type: 
  Country: None (occurrence: None)
  Receive Date: 20061201
  Receipt Date: 20060926
  Transmission Date: 20070707
  Serious: No
  Sender: FDA-Public Use
  Company Number: 2006PV016516

PATIENT
  Age: 64 Year
  Sex: Male
  Weight: 113.3993 kg

DRUGS (8)
  1. BYETTA [Suspect]
     Indication: DIABETES MELLITUS NON-INSULIN-DEPENDENT
     Dosage: 5 MCG;BID;SC
     Route: 058
     Dates: start: 20060530
  2. BYETTA [Suspect]
     Indication: DIABETES MELLITUS NON-INSULIN-DEPENDENT
     Dosage: 5 MCG;BID;SC
     Route: 058
     Dates: start: 20060701
  3. BYETTA [Suspect]
  4. GLIMEPIRIDE [Concomitant]
  5. METFORMIN HCL [Concomitant]
  6. AVANDIA [Concomitant]
  7. AMARYL [Concomitant]
  8. METFORMIN HCL [Concomitant]

REACTIONS (4)
  - BLOOD GLUCOSE DECREASED [None]
  - BLOOD GLUCOSE INCREASED [None]
  - HUNGER [None]
  - TREMOR [None]
